FAERS Safety Report 8885849 (Version 2)
Quarter: 2012Q4

REPORT INFORMATION
  Report Type: 
  Country: JP (occurrence: JP)
  Receive Date: 20121105
  Receipt Date: 20121206
  Transmission Date: 20130627
  Serious: Yes (Other)
  Sender: FDA-Public Use
  Company Number: JP-PFIZER INC-2012272062

PATIENT
  Age: 77 Year
  Sex: Female

DRUGS (2)
  1. LYRICA [Suspect]
     Indication: LOW BACK PAIN
     Dosage: 50 mg, daily
     Route: 048
  2. LYRICA [Suspect]
     Dosage: 100 mg, daily

REACTIONS (1)
  - Pleurothotonus [Recovered/Resolved]
